FAERS Safety Report 4595595-1 (Version None)
Quarter: 2005Q1

REPORT INFORMATION
  Report Type: 
  Country: None (occurrence: None)
  Receive Date: 20050224
  Receipt Date: 20050210
  Transmission Date: 20050727
  Serious: Yes (Hospitalization)
  Sender: FDA-Public Use
  Company Number: US014623

PATIENT
  Age: 23 Year
  Sex: Female

DRUGS (5)
  1. GABITRIL [Suspect]
     Indication: AGITATION
     Dosage: 300 MG ONCE ORAL
     Route: 048
     Dates: start: 20050105, end: 20050105
  2. GABITRIL [Suspect]
     Indication: ANXIETY
     Dosage: 300 MG ONCE ORAL
     Route: 048
     Dates: start: 20050105, end: 20050105
  3. GABITRIL [Suspect]
     Indication: INSOMNIA
     Dosage: 300 MG ONCE ORAL
     Route: 048
     Dates: start: 20050105, end: 20050105
  4. LAMICTAL [Concomitant]
  5. RISPERDAL [Concomitant]

REACTIONS (7)
  - COMA [None]
  - CONFUSIONAL STATE [None]
  - GRAND MAL CONVULSION [None]
  - INTENTIONAL MISUSE [None]
  - LOSS OF CONSCIOUSNESS [None]
  - RESPIRATORY ARREST [None]
  - SUICIDE ATTEMPT [None]
